FAERS Safety Report 10304683 (Version 1)
Quarter: 2014Q3

REPORT INFORMATION
  Report Type: Spontaneous
  Country: IT (occurrence: None)
  Receive Date: 20140709
  Receipt Date: 20140709
  Transmission Date: 20150326
  Serious: Yes (Other)
  Sender: FDA-Public Use
  Company Number: DKLU1098894

PATIENT
  Age: 36 Year
  Sex: Female

DRUGS (3)
  1. TORADOL [Concomitant]
     Active Substance: KETOROLAC TROMETHAMINE
  2. TEGRETOL [Suspect]
     Active Substance: CARBAMAZEPINE
     Indication: EPILEPSY
     Route: 048
     Dates: start: 20140223, end: 20140223
  3. FRISIUM [Suspect]
     Active Substance: CLOBAZAM
     Indication: ANXIETY
     Route: 048
     Dates: start: 20140223, end: 20140223

REACTIONS (4)
  - Hypotension [None]
  - Drug abuse [None]
  - Intentional overdose [None]
  - Sopor [None]

NARRATIVE: CASE EVENT DATE: 20140223
